FAERS Safety Report 7977073-2 (Version None)
Quarter: 2011Q4

REPORT INFORMATION
  Report Type: 
  Country: None (occurrence: None)
  Receive Date: 20111213
  Receipt Date: 20111114
  Transmission Date: 20120403
  Serious: No
  Sender: FDA-Public Use
  Company Number: US-AMGEN-USASP2011059983

PATIENT
  Age: 64 Year

DRUGS (3)
  1. HUMIRA [Concomitant]
     Indication: BEHCET'S SYNDROME
     Dosage: 40 MG, QWK
     Route: 058
     Dates: start: 20040801, end: 20060501
  2. ENBREL [Suspect]
     Indication: PRODUCT USED FOR UNKNOWN INDICATION
     Dosage: UNK
     Dates: start: 19990701, end: 20020201
  3. REMICADE [Concomitant]
     Indication: PRODUCT USED FOR UNKNOWN INDICATION
     Dosage: UNK
     Dates: start: 20020201, end: 20040801

REACTIONS (1)
  - TACHYPHYLAXIS [None]
